FAERS Safety Report 9129466 (Version 1)
Quarter: 2013Q1

REPORT INFORMATION
  Report Type: Spontaneous
  Country: US (occurrence: US)
  Receive Date: 20130228
  Receipt Date: 20130228
  Transmission Date: 20140127
  Serious: No
  Sender: FDA-Public Use
  Company Number: US-009507513-1302USA013521

PATIENT
  Sex: Female
  Weight: 79.82 kg

DRUGS (5)
  1. A+D MEDICATED OINTMENT [Suspect]
     Indication: RASH
     Dosage: UNK, PRN
     Route: 061
  2. A+D MEDICATED OINTMENT [Suspect]
     Dosage: UNK, UNKNOWN
     Route: 061
  3. GLIPIZIDE XL [Concomitant]
     Indication: DIABETES MELLITUS
     Dosage: UNK, UNKNOWN
  4. ZOCOR [Concomitant]
     Indication: BLOOD CHOLESTEROL INCREASED
     Dosage: UNK, UNKNOWN
  5. METOPROLOL TARTRATE [Concomitant]
     Indication: HYPERTENSION
     Dosage: UNK, UNKNOWN

REACTIONS (1)
  - Expired drug administered [Unknown]
